FAERS Safety Report 7609809-4 (Version None)
Quarter: 2011Q3

REPORT INFORMATION
  Report Type: 
  Country: None (occurrence: None)
  Receive Date: 20110714
  Receipt Date: 20110701
  Transmission Date: 20111222
  Serious: Yes (Other)
  Sender: FDA-Public Use
  Company Number: GB-US-EMD SERONO, INC.-7068177

PATIENT
  Sex: Female

DRUGS (2)
  1. SAIZEN [Suspect]
     Route: 058
  2. SAIZEN [Suspect]
     Indication: GROWTH HORMONE DEFICIENCY
     Route: 058
     Dates: start: 20110617, end: 20110630

REACTIONS (3)
  - PETIT MAL EPILEPSY [None]
  - FLUID RETENTION [None]
  - OEDEMA PERIPHERAL [None]
